FAERS Safety Report 10156827 (Version 1)
Quarter: 2014Q2

REPORT INFORMATION
  Report Type: Spontaneous
  Country: US (occurrence: US)
  Receive Date: 20140507
  Receipt Date: 20140507
  Transmission Date: 20141212
  Serious: No
  Sender: FDA-Public Use
  Company Number: US-BAYER-2014-066994

PATIENT
  Age: 74 Year
  Sex: Female
  Weight: 72.56 kg

DRUGS (9)
  1. ALEVE CAPLET [Suspect]
     Indication: BACK PAIN
     Dosage: 1-2 DF, UNK
     Route: 048
     Dates: start: 1987
  2. ALEVE CAPLET [Suspect]
     Indication: BACK PAIN
     Dosage: 4 DF IN A DAY
  3. VITAMIN D [COLECALCIFEROL] [Concomitant]
  4. ATENOLOL [Concomitant]
  5. BENICAR [Concomitant]
  6. LANTUS [Concomitant]
  7. PLAVIX [Concomitant]
  8. LOVASTATIN [Concomitant]
  9. DORYX [Concomitant]

REACTIONS (5)
  - Drug ineffective [None]
  - Incorrect drug administration duration [None]
  - Incorrect dose administered [None]
  - Somnolence [Recovered/Resolved]
  - Inappropriate schedule of drug administration [None]
